FAERS Safety Report 4366288-0 (Version None)
Quarter: 2004Q2

REPORT INFORMATION
  Report Type: 
  Country: None (occurrence: None)
  Receive Date: 20040526
  Receipt Date: 20040526
  Transmission Date: 20050107
  Serious: No
  Sender: FDA-Public Use
  Company Number: None

PATIENT
  Age: 78 Year
  Sex: Male
  Weight: 137.9 kg

DRUGS (19)
  1. VIOXX [Suspect]
  2. BUMETANIDE [Concomitant]
  3. METOCLOPRAMIDE HCL [Concomitant]
  4. FOSINOPRIL NA [Concomitant]
  5. CETRIZINE HCL [Concomitant]
  6. GG 600/PSEUDOEPHEDRINE [Concomitant]
  7. SERTRALINE HCL [Concomitant]
  8. WARFARIN SODIUM [Concomitant]
  9. OMEPRAZOLE [Concomitant]
  10. SIMVASTATIN [Concomitant]
  11. ISOSORBIDE MONONITRATE [Concomitant]
  12. TERAZOSIN HCL [Concomitant]
  13. CALCIUM 500 MG/SENNOSIDES [Concomitant]
  14. FINASTERIDE [Concomitant]
  15. DOCUSATE NA 50 MG/SEMNOSIDES [Concomitant]
  16. HYDROCORTISONE [Concomitant]
  17. LIDOCAINE [Concomitant]
  18. POTASSIUM CHLORIDE [Concomitant]
  19. MENTHOL 10%/METHYL SALIC [Concomitant]

REACTIONS (2)
  - OEDEMA [None]
  - WEIGHT INCREASED [None]
